FAERS Safety Report 14834706 (Version 1)
Quarter: 2018Q2

REPORT INFORMATION
  Report Type: Spontaneous
  Country: CA (occurrence: CA)
  Receive Date: 20180501
  Receipt Date: 20180501
  Transmission Date: 20180711
  Serious: Yes (Other)
  Sender: FDA-Public Use
  Company Number: CA-PFIZER INC-2018173829

PATIENT
  Age: 72 Year
  Sex: Female

DRUGS (2)
  1. GABAPENTIN. [Suspect]
     Active Substance: GABAPENTIN
     Indication: NEURALGIA
     Dosage: UNK
  2. XELJANZ [Suspect]
     Active Substance: TOFACITINIB CITRATE
     Indication: RHEUMATOID ARTHRITIS
     Dosage: 5 MG, 2X/DAY
     Route: 048
     Dates: start: 20171213, end: 201801

REACTIONS (12)
  - Peripheral swelling [Unknown]
  - Skin disorder [Unknown]
  - Fluid retention [Unknown]
  - Dry throat [Unknown]
  - Pulmonary oedema [Unknown]
  - Disease recurrence [Unknown]
  - Dry mouth [Unknown]
  - Pericardial effusion [Unknown]
  - Dyspnoea [Not Recovered/Not Resolved]
  - Eye swelling [Unknown]
  - Swelling face [Unknown]
  - Weight increased [Recovering/Resolving]
